FAERS Safety Report 11344725 (Version 2)
Quarter: 2015Q4

REPORT INFORMATION
  Report Type: Spontaneous
  Country: PL (occurrence: PL)
  Receive Date: 20150806
  Receipt Date: 20151110
  Transmission Date: 20160304
  Serious: Yes (Hospitalization, Other)
  Sender: FDA-Public Use
  Company Number: PL-TEVA-584338ISR

PATIENT
  Age: 38 Year
  Sex: Male

DRUGS (8)
  1. LACOSAMIDE [Concomitant]
     Active Substance: LACOSAMIDE
     Dosage: 400 MILLIGRAM DAILY;
  2. VALPROATE [Concomitant]
     Active Substance: VALPROATE SODIUM
  3. CARBAMAZEPINE. [Suspect]
     Active Substance: CARBAMAZEPINE
     Dosage: 1200 MILLIGRAM DAILY;
  4. GABAPENTIN. [Suspect]
     Active Substance: GABAPENTIN
  5. RISPERIDON [Concomitant]
     Active Substance: RISPERIDONE
  6. LAMOTRIGINE. [Suspect]
     Active Substance: LAMOTRIGINE
  7. LEVETIRACETAM. [Suspect]
     Active Substance: LEVETIRACETAM
     Dosage: 1000 MILLIGRAM DAILY;
  8. TIAGABINE [Suspect]
     Active Substance: TIAGABINE

REACTIONS (4)
  - Psychotic disorder [Recovered/Resolved]
  - Dizziness [Recovered/Resolved]
  - Vision blurred [Recovering/Resolving]
  - Rash [Unknown]
